FAERS Safety Report 4413095-6 (Version None)
Quarter: 2004Q3

REPORT INFORMATION
  Report Type: 
  Country: None (occurrence: None)
  Receive Date: 20040802
  Receipt Date: 20040722
  Transmission Date: 20050211
  Serious: Yes (Other)
  Sender: FDA-Public Use
  Company Number: US-ROCHE-375425

PATIENT
  Age: 53 Year
  Sex: Female

DRUGS (3)
  1. XELODA [Suspect]
     Indication: COLON CANCER
     Route: 048
     Dates: start: 20040528
  2. SYNTHROID [Concomitant]
     Indication: THYROID DISORDER
     Route: 048
  3. FEMHRT [Concomitant]

REACTIONS (10)
  - BACTERIAL INFECTION [None]
  - BLOOD THYROID STIMULATING HORMONE DECREASED [None]
  - FATIGUE [None]
  - HYPERSOMNIA [None]
  - INCREASED APPETITE [None]
  - INFECTION [None]
  - PALPITATIONS [None]
  - PARAESTHESIA [None]
  - THYROID FUNCTION TEST ABNORMAL [None]
  - THYROXINE INCREASED [None]
